FAERS Safety Report 8915856 (Version 1)
Quarter: 2012Q4

REPORT INFORMATION
  Report Type: 
  Country: US (occurrence: US)
  Receive Date: 20121119
  Receipt Date: 20121119
  Transmission Date: 20130627
  Serious: No
  Sender: FDA-Public Use
  Company Number: US-PFIZER INC-2012288410

PATIENT
  Age: 47 Year
  Sex: Female
  Weight: 52.15 kg

DRUGS (3)
  1. CHANTIX [Suspect]
     Indication: SMOKING CESSATION THERAPY
     Dosage: 1 DF, 2x/day
     Route: 048
     Dates: start: 2011
  2. CHANTIX [Suspect]
     Dosage: 1 DF, daily
     Route: 048
     Dates: start: 201203, end: 2012
  3. CHANTIX [Suspect]
     Dosage: 1 DF, 2x/day
     Route: 048
     Dates: start: 2012, end: 20121112

REACTIONS (2)
  - Feeling abnormal [Recovered/Resolved]
  - Feeling jittery [Recovered/Resolved]
